FAERS Safety Report 6712882-9 (Version None)
Quarter: 2010Q2

REPORT INFORMATION
  Report Type: 
  Country: None (occurrence: None)
  Receive Date: 20100505
  Receipt Date: 20100505
  Transmission Date: 20101027
  Serious: Yes (Other)
  Sender: FDA-Public Use
  Company Number: None

PATIENT
  Age: 2 Year
  Sex: Female
  Weight: 15.4223 kg

DRUGS (1)
  1. CONCENTRATED MOTRIN INFANTS DROPS [Suspect]
     Indication: PYREXIA
     Dosage: 2.3ML EVERY 8 HOURS PO 2 TIMES
     Route: 048
     Dates: start: 20100430, end: 20100501

REACTIONS (3)
  - CONDITION AGGRAVATED [None]
  - FEBRILE CONVULSION [None]
  - PYREXIA [None]
